FAERS Safety Report 8882584 (Version 4)
Quarter: 2013Q1

REPORT INFORMATION
  Report Type: Spontaneous
  Country: JP (occurrence: JP)
  Receive Date: 20121102
  Receipt Date: 20130227
  Transmission Date: 20140127
  Serious: Yes (Hospitalization, Other)
  Sender: FDA-Public Use
  Company Number: JP-ELI_LILLY_AND_COMPANY-JP201210006704

PATIENT
  Age: 51 Year
  Sex: Female

DRUGS (1)
  1. FORTEO [Suspect]
     Dosage: UNK
     Route: 058
     Dates: start: 201205

REACTIONS (5)
  - Pubis fracture [Unknown]
  - Fractured ischium [Unknown]
  - Fractured coccyx [Unknown]
  - Lower limb fracture [Unknown]
  - Oedema peripheral [Not Recovered/Not Resolved]
